FAERS Safety Report 16381879 (Version 1)
Quarter: 2019Q2

REPORT INFORMATION
  Report Type: Spontaneous
  Country: FR (occurrence: FR)
  Receive Date: 20190603
  Receipt Date: 20190603
  Transmission Date: 20190711
  Serious: Yes (Hospitalization)
  Sender: FDA-Public Use
  Company Number: FR-TEVA-2019-FR-1057289

PATIENT
  Age: 83 Year
  Sex: Male
  Weight: 71 kg

DRUGS (12)
  1. APROVEL [Concomitant]
     Active Substance: IRBESARTAN
  2. XATRAL [Concomitant]
     Active Substance: ALFUZOSIN
  3. RISPERDAL [Suspect]
     Active Substance: RISPERIDONE
     Indication: DEMENTIA WITH LEWY BODIES
     Dosage: 1 DOSAGE FORMS DAILY;
     Route: 048
     Dates: end: 20121130
  4. ZELITREX 500 MG, COMPRIM? ENROB? [Suspect]
     Active Substance: VALACYCLOVIR HYDROCHLORIDE
     Indication: HERPES ZOSTER
     Dosage: 2 DOSAGE FORMS DAILY;
     Route: 048
     Dates: start: 201211, end: 20121130
  5. CRESTOR [Concomitant]
     Active Substance: ROSUVASTATIN CALCIUM
  6. INEXIUM [Concomitant]
     Active Substance: ESOMEPRAZOLE
  7. MODOPAR [Concomitant]
     Active Substance: BENSERAZIDE HYDROCHLORIDE\LEVODOPA
  8. LAMICTAL [Concomitant]
     Active Substance: LAMOTRIGINE
  9. NOCTRAN [Suspect]
     Active Substance: ACEPROMAZINE MALEATE\ACEPROMETAZINE\CLORAZEPATE DIPOTASSIUM
     Indication: ANXIETY
     Dosage: 7.5 MILLIGRAM DAILY;
     Route: 048
     Dates: end: 20121130
  10. EXELON [Concomitant]
     Active Substance: RIVASTIGMINE TARTRATE
  11. ALPRAZOLAM. [Suspect]
     Active Substance: ALPRAZOLAM
     Indication: ANXIETY
     Dosage: 1 DOSAGE FORMS DAILY;
     Route: 048
     Dates: end: 20121130
  12. MIANSERINE (CHLORHYDRATE DE) [Concomitant]
     Active Substance: MIANSERIN HYDROCHLORIDE

REACTIONS (3)
  - Acute kidney injury [Recovered/Resolved]
  - Somnolence [Recovered/Resolved]
  - Confusional state [Recovered/Resolved]

NARRATIVE: CASE EVENT DATE: 20121130
